FAERS Safety Report 7231810-3 (Version None)
Quarter: 2011Q1

REPORT INFORMATION
  Report Type: 
  Country: None (occurrence: None)
  Receive Date: 20110118
  Receipt Date: 20110112
  Transmission Date: 20110831
  Serious: Yes (Hospitalization)
  Sender: FDA-Public Use
  Company Number: IT-ASTRAZENECA-2011SE02165

PATIENT
  Sex: Male

DRUGS (5)
  1. NORVASC [Concomitant]
  2. ATENOLOL [Suspect]
     Indication: HYPERTENSION
     Route: 048
     Dates: start: 20080101, end: 20110104
  3. ATENOLOL [Suspect]
     Route: 048
     Dates: start: 20080105, end: 20110107
  4. BLOPRESS (CANDESARTAN CILEXETILL) [Concomitant]
     Route: 048
  5. GARDENALE (PHENOBARBITAL) [Concomitant]

REACTIONS (2)
  - LEFT VENTRICULAR FAILURE [None]
  - SINUS BRADYCARDIA [None]
